FAERS Safety Report 7635555-7 (Version None)
Quarter: 2011Q3

REPORT INFORMATION
  Report Type: 
  Country: None (occurrence: None)
  Receive Date: 20110726
  Receipt Date: 20110722
  Transmission Date: 20111222
  Serious: Yes (Hospitalization)
  Sender: FDA-Public Use
  Company Number: US-B.I. PHARMACEUTICALS,INC./RIDGEFIELD-2011-BP-18309BP

PATIENT
  Sex: Male

DRUGS (4)
  1. COMBIVENT [Suspect]
     Indication: CHRONIC OBSTRUCTIVE PULMONARY DISEASE
     Route: 055
  2. LASIX [Concomitant]
     Indication: FLUID RETENTION
     Dosage: 25 MG
     Route: 048
     Dates: end: 20110715
  3. ATENOLOL [Concomitant]
     Indication: HYPERTENSION
     Dosage: 25 MG
     Route: 048
  4. AMLODIPINE [Concomitant]
     Indication: HYPERTENSION
     Dosage: 25 MG
     Route: 048

REACTIONS (1)
  - DYSPNOEA [None]
